FAERS Safety Report 5292176-1 (Version None)
Quarter: 2007Q2

REPORT INFORMATION
  Report Type: 
  Country: None (occurrence: None)
  Receive Date: 20070410
  Receipt Date: 20070402
  Transmission Date: 20071010
  Serious: Yes (Hospitalization)
  Sender: FDA-Public Use
  Company Number: US-ELI_LILLY_AND_COMPANY-US200704000502

PATIENT
  Age: 70 Year
  Sex: Female

DRUGS (3)
  1. BYETTA [Suspect]
     Dosage: 5 UG, UNKNOWN
     Route: 058
  2. BYETTA [Suspect]
     Dosage: 10 UG, UNKNOWN
     Route: 058
  3. GLUCOPHAGE [Concomitant]
     Dosage: UNK, UNKNOWN

REACTIONS (2)
  - CATHETERISATION CARDIAC [None]
  - MYOCARDIAL INFARCTION [None]
